FAERS Safety Report 8050046-X (Version None)
Quarter: 2012Q1

REPORT INFORMATION
  Report Type: 
  Country: None (occurrence: None)
  Receive Date: 20120117
  Receipt Date: 20120116
  Transmission Date: 20120608
  Serious: Yes (Death, Life-Threatening, Hospitalization)
  Sender: FDA-Public Use
  Company Number: JP-BAYER-201015771BYL

PATIENT
  Age: 76 Year
  Sex: Male
  Weight: 54 kg

DRUGS (6)
  1. ASPIRIN [Concomitant]
     Dosage: DAILY DOSE 100 MG
     Route: 048
  2. TENORMIN [Concomitant]
     Indication: HYPERTENSION
     Dosage: DAILY DOSE 50 MG
     Route: 048
  3. NEXAVAR [Suspect]
     Indication: HEPATIC NEOPLASM MALIGNANT
     Dosage: DAILY DOSE 200 MG
     Route: 048
     Dates: start: 20100831, end: 20101012
  4. BEZATOL [Concomitant]
     Indication: HYPERLIPIDAEMIA
     Dosage: DAILY DOSE 400 MG
     Route: 048
  5. FAMOTIDINE [Concomitant]
     Dosage: DAILY DOSE 40 MG
     Route: 048
  6. NORVASC [Concomitant]
     Indication: HYPERTENSION
     Dosage: DAILY DOSE 5 MG
     Route: 048

REACTIONS (4)
  - PALMAR-PLANTAR ERYTHRODYSAESTHESIA SYNDROME [None]
  - LIVER DISORDER [None]
  - PNEUMONIA [None]
  - DIARRHOEA [None]
